FAERS Safety Report 16417011 (Version 4)
Quarter: 2019Q3

REPORT INFORMATION
  Report Type: Report from Study
  Country: US (occurrence: US)
  Receive Date: 20190611
  Receipt Date: 20190923
  Transmission Date: 20191004
  Serious: Yes (Hospitalization, Other)
  Sender: FDA-Public Use
  Company Number: US-TESAROUBC-2019-TSO01575-US

PATIENT
  Sex: Female
  Weight: 82 kg

DRUGS (12)
  1. GABAPENTIN. [Concomitant]
     Active Substance: GABAPENTIN
     Dosage: UNK, TID
     Dates: start: 201904
  2. NOVOLOG [Concomitant]
     Active Substance: INSULIN ASPART
     Dosage: UNK
  3. NIRAPARIB [Suspect]
     Active Substance: NIRAPARIB
     Dosage: 200 MG, QD
     Route: 065
     Dates: start: 201901, end: 20190410
  4. HYDROCHLOROTHIAZIDE. [Concomitant]
     Active Substance: HYDROCHLOROTHIAZIDE
     Dosage: UNK
  5. METFORMIN [Concomitant]
     Active Substance: METFORMIN HYDROCHLORIDE
     Dosage: UNK
  6. METOPROLOL. [Concomitant]
     Active Substance: METOPROLOL
     Dosage: UNK
  7. NIRAPARIB [Suspect]
     Active Substance: NIRAPARIB
     Dosage: 200 MG, QD
     Route: 065
  8. BENADRYL [Concomitant]
     Active Substance: DIPHENHYDRAMINE HYDROCHLORIDE
     Dosage: UNK, PRN
  9. ONE-A-DAY                          /00156401/ [Concomitant]
     Active Substance: UNSPECIFIED INGREDIENT
     Dosage: UNK
  10. GABAPENTIN. [Concomitant]
     Active Substance: GABAPENTIN
     Dosage: UNK
  11. LOSARTAN. [Concomitant]
     Active Substance: LOSARTAN
     Dosage: UNK
  12. WARFARIN [Concomitant]
     Active Substance: WARFARIN
     Dosage: UNK

REACTIONS (30)
  - Taste disorder [Not Recovered/Not Resolved]
  - Dehydration [Recovered/Resolved]
  - Blood pressure increased [Recovered/Resolved]
  - Fatigue [Not Recovered/Not Resolved]
  - Abdominal pain [Unknown]
  - Pulmonary oedema [Unknown]
  - Appetite disorder [Recovered/Resolved]
  - Chest pain [Recovered/Resolved]
  - Dyspnoea [Not Recovered/Not Resolved]
  - Deep vein thrombosis [Recovered/Resolved]
  - Tremor [Unknown]
  - Constipation [Recovered/Resolved]
  - Sluggishness [Not Recovered/Not Resolved]
  - Blood cholesterol decreased [Unknown]
  - Food poisoning [Unknown]
  - Abdominal rigidity [Unknown]
  - Paraesthesia [Unknown]
  - Faeces hard [Unknown]
  - Nausea [Recovered/Resolved]
  - Myalgia [Recovered/Resolved]
  - Weight decreased [Not Recovered/Not Resolved]
  - Decreased appetite [Recovered/Resolved]
  - Emotional distress [Unknown]
  - Food craving [Unknown]
  - Cough [Recovered/Resolved]
  - Cognitive disorder [Unknown]
  - Visual impairment [Unknown]
  - Balance disorder [Not Recovered/Not Resolved]
  - Productive cough [Not Recovered/Not Resolved]
  - Asthenia [Not Recovered/Not Resolved]

NARRATIVE: CASE EVENT DATE: 2019
